FAERS Safety Report 7956214-7 (Version None)
Quarter: 2011Q4

REPORT INFORMATION
  Report Type: 
  Country: None (occurrence: None)
  Receive Date: 20111205
  Receipt Date: 20111130
  Transmission Date: 20120403
  Serious: Yes (Other)
  Sender: FDA-Public Use
  Company Number: JP-BAYER-2011-021503

PATIENT
  Age: 73 Year
  Sex: Male
  Weight: 74 kg

DRUGS (7)
  1. LIPIODOL [Concomitant]
     Indication: THERAPEUTIC EMBOLISATION
     Dosage: DAILY DOSE 5 ML
     Route: 042
     Dates: start: 20110203, end: 20110203
  2. NEXAVAR [Suspect]
     Indication: HEPATIC NEOPLASM MALIGNANT
     Dosage: DAILY DOSE 400 MG
     Route: 048
     Dates: start: 20110210, end: 20110703
  3. URSO 250 [Concomitant]
     Indication: HEPATIC FUNCTION ABNORMAL
     Dosage: DAILY DOSE 600 MG
     Route: 048
     Dates: start: 20110214
  4. BIO THREE [CLOSTRID BUTYRICUM,LACTOBAC ACIDOPH,SACCHAROM BOULAR] [Concomitant]
     Indication: CONSTIPATION
     Dosage: DAILY DOSE 3 DF
     Route: 048
     Dates: start: 20110228
  5. EPIRUBICIN HYDROCHLORIDE [Suspect]
     Dosage: DAILY DOSE 30 MG
     Route: 042
     Dates: start: 20110415, end: 20110415
  6. LIPIODOL [Concomitant]
     Dosage: DAILY DOSE 3 ML
     Route: 042
     Dates: start: 20110415, end: 20110415
  7. EPIRUBICIN HYDROCHLORIDE [Suspect]
     Indication: THERAPEUTIC EMBOLISATION
     Dosage: DAILY DOSE 50 MG
     Route: 042
     Dates: start: 20110203, end: 20110203

REACTIONS (5)
  - THROMBOCYTOPENIA [None]
  - BLOOD PRESSURE INCREASED [None]
  - DIARRHOEA [None]
  - DECREASED APPETITE [None]
  - DYSPHONIA [None]
